FAERS Safety Report 7288197-X (Version None)
Quarter: 2011Q1

REPORT INFORMATION
  Report Type: 
  Country: None (occurrence: None)
  Receive Date: 20110211
  Receipt Date: 20110201
  Transmission Date: 20110831
  Serious: Yes (Hospitalization)
  Sender: FDA-Public Use
  Company Number: US-ACTELION-A-NJ2010-37182

PATIENT

DRUGS (4)
  1. TRACLEER [Suspect]
     Dosage: 125 MG, BID
     Route: 048
     Dates: start: 20100224, end: 20100615
  2. TRACLEER [Suspect]
     Dosage: UNK
     Route: 048
     Dates: start: 20100101, end: 20100701
  3. TRACLEER [Suspect]
     Indication: PULMONARY ARTERIAL HYPERTENSION
     Dosage: UNK
     Route: 048
     Dates: start: 20100721
  4. TRACLEER [Suspect]
     Dosage: 62.5 MG, BID
     Route: 048
     Dates: start: 20100123, end: 20100223

REACTIONS (10)
  - PULMONARY ARTERIAL HYPERTENSION [None]
  - SEPSIS [None]
  - ABNORMAL LOSS OF WEIGHT [None]
  - PYREXIA [None]
  - FLUID OVERLOAD [None]
  - CARDIAC FAILURE CONGESTIVE [None]
  - RENAL DISORDER [None]
  - RENAL FAILURE [None]
  - DYSPNOEA [None]
  - URINARY TRACT INFECTION [None]
